FAERS Safety Report 8094039-5 (Version None)
Quarter: 2012Q1

REPORT INFORMATION
  Report Type: 
  Country: None (occurrence: None)
  Receive Date: 20120125
  Receipt Date: 20120116
  Transmission Date: 20120608
  Serious: Yes (Death)
  Sender: FDA-Public Use
  Company Number: 2012POI057500046

PATIENT
  Age: 15 Month
  Sex: Female

DRUGS (1)
  1. ORAMORPH SR [Suspect]
     Dosage: PER ORAL
     Route: 048
     Dates: start: 20100101, end: 20100101

REACTIONS (13)
  - BRAIN HERNIATION [None]
  - WHEEZING [None]
  - NO THERAPEUTIC RESPONSE [None]
  - DRUG ADMINISTERED TO PATIENT OF INAPPROPRIATE AGE [None]
  - UNRESPONSIVE TO STIMULI [None]
  - HEART RATE INCREASED [None]
  - BLOOD GLUCOSE DECREASED [None]
  - ACCIDENTAL DRUG INTAKE BY CHILD [None]
  - BRAIN OEDEMA [None]
  - RESPIRATORY ARREST [None]
  - BREATH SOUNDS ABNORMAL [None]
  - TOXICITY TO VARIOUS AGENTS [None]
  - HYPOXIC-ISCHAEMIC ENCEPHALOPATHY [None]
